FAERS Safety Report 9221090 (Version 1)
Quarter: 2013Q2

REPORT INFORMATION
  Report Type: Report from Study
  Country: US (occurrence: US)
  Receive Date: 20130409
  Receipt Date: 20130409
  Transmission Date: 20140414
  Serious: Yes (Other)
  Sender: FDA-Public Use
  Company Number: US-US-EMD SERONO, INC.-7203350

PATIENT
  Age: 21 Year
  Sex: Female

DRUGS (3)
  1. REBIF [Suspect]
     Indication: MULTIPLE SCLEROSIS
     Route: 058
     Dates: start: 20110102, end: 20111209
  2. REBIF [Suspect]
     Route: 058
  3. NAPROXEN [Concomitant]
     Indication: PREMEDICATION

REACTIONS (4)
  - Abortion spontaneous [Recovered/Resolved]
  - Tremor [Unknown]
  - Injection site rash [Not Recovered/Not Resolved]
  - Maternal exposure timing unspecified [Recovered/Resolved]
